FAERS Safety Report 25446003 (Version 1)
Quarter: 2025Q2

REPORT INFORMATION
  Report Type: Spontaneous
  Country: HR (occurrence: HR)
  Receive Date: 20250617
  Receipt Date: 20250617
  Transmission Date: 20250716
  Serious: Yes (Life-Threatening, Hospitalization, Other)
  Sender: FRESENIUS KABI
  Company Number: None

PATIENT
  Age: 79 Year
  Sex: Female
  Weight: 58 kg

DRUGS (7)
  1. SODIUM CHLORIDE [Suspect]
     Active Substance: SODIUM CHLORIDE
     Indication: Medication dilution
     Dosage: 0.9 PERCENT NACL A 500 ML (DILUTION)?DOSAGE FORM: SOLUTION FOR INFUSION
     Route: 042
     Dates: start: 20250524, end: 20250525
  2. AMOXICILLIN\CLAVULANIC ACID [Suspect]
     Active Substance: AMOXICILLIN\CLAVULANIC ACID
     Indication: Prophylaxis
     Dosage: 1 DF= 1 DF= 1000 MG/200 MG = ONE BOTTLE CONTAINS 1000 MG OF AMOXICILLIN IN THE FORM OF AMOXICILLIN S
     Route: 042
     Dates: start: 20250526, end: 20250526
  3. AMOXICILLIN\CLAVULANIC ACID [Suspect]
     Active Substance: AMOXICILLIN\CLAVULANIC ACID
     Dosage: 1 DF= 1 DF= 1000 MG/200 MG = ONE BOTTLE CONTAINS 1000 MG OF AMOXICILLIN IN THE FORM OF AMOXICILLIN S
     Route: 042
     Dates: start: 20250524, end: 20250525
  4. SODIUM CHLORIDE [Suspect]
     Active Substance: SODIUM CHLORIDE
     Indication: Medication dilution
     Dosage: 0.9 PERCENT NACL A 500 ML (DILUTION)?DOSAGE FORM: SOLUTION FOR INFUSION
     Route: 042
     Dates: start: 20250526, end: 20250526
  5. Fevarin [Fluvoxamine maleate] [Concomitant]
     Indication: Product used for unknown indication
     Route: 048
  6. DENOSUMAB [Concomitant]
     Active Substance: DENOSUMAB
     Indication: Osteoporosis
  7. Helex [Alprazolam] [Concomitant]
     Indication: Product used for unknown indication
     Route: 048

REACTIONS (7)
  - Chills [Recovering/Resolving]
  - Oxygen saturation decreased [Recovering/Resolving]
  - Body temperature increased [Recovering/Resolving]
  - Anaphylactic reaction [Recovering/Resolving]
  - Hypertension [Recovering/Resolving]
  - Tachycardia [Recovering/Resolving]
  - Suspected product quality issue [Recovering/Resolving]

NARRATIVE: CASE EVENT DATE: 20250526
